FAERS Safety Report 8766856 (Version 2)
Quarter: 2012Q4

REPORT INFORMATION
  Report Type: 
  Country: SE (occurrence: SE)
  Receive Date: 20120904
  Receipt Date: 20121024
  Transmission Date: 20130627
  Serious: Yes (Other)
  Sender: FDA-Public Use
  Company Number: SE-ELI_LILLY_AND_COMPANY-SE201208007267

PATIENT
  Age: 49 Year
  Sex: Male

DRUGS (2)
  1. ZYPADHERA [Suspect]
     Indication: SCHIZOPHRENIA
     Dosage: 210 mg, unknown
     Route: 030
     Dates: start: 201207
  2. ZYPADHERA [Suspect]
     Dosage: 405 mg, monthly (1/M)
     Route: 030
     Dates: start: 20120822, end: 20120822

REACTIONS (2)
  - Coma [Recovered/Resolved]
  - Confusional state [Recovered/Resolved]
